FAERS Safety Report 18351716 (Version 2)
Quarter: 2020Q4

REPORT INFORMATION
  Report Type: Spontaneous
  Country: GB (occurrence: GB)
  Receive Date: 20201006
  Receipt Date: 20201021
  Transmission Date: 20210114
  Serious: Yes (Other)
  Sender: FDA-Public Use
  Company Number: GB-UCBSA-2020038329

PATIENT
  Age: 44 Year
  Sex: Female

DRUGS (2)
  1. BENEPALI [Suspect]
     Active Substance: ETANERCEPT
     Indication: ANKYLOSING SPONDYLITIS
     Route: 058
  2. CIMZIA [Suspect]
     Active Substance: CERTOLIZUMAB PEGOL
     Indication: PRODUCT USED FOR UNKNOWN INDICATION
     Dosage: UNKNOWN
     Route: 065

REACTIONS (16)
  - Sleep disorder [Unknown]
  - Musculoskeletal chest pain [Unknown]
  - Ear pain [Unknown]
  - Pain [Unknown]
  - Therapeutic product effect incomplete [Unknown]
  - Anxiety [Unknown]
  - Influenza like illness [Unknown]
  - Palpitations [Unknown]
  - Pain in extremity [Unknown]
  - Chest discomfort [Unknown]
  - Feeding disorder [Unknown]
  - Neck pain [Unknown]
  - Tongue eruption [Unknown]
  - Melanocytic naevus [Unknown]
  - Dyspnoea [Unknown]
  - Oral disorder [Not Recovered/Not Resolved]
